FAERS Safety Report 8516583-6 (Version None)
Quarter: 2012Q3

REPORT INFORMATION
  Report Type: 
  Country: None (occurrence: None)
  Receive Date: 20120711
  Receipt Date: 20120711
  Transmission Date: 20120928
  Serious: Yes (Other)
  Sender: FDA-Public Use
  Company Number: None

PATIENT
  Sex: Female

DRUGS (4)
  1. TRAZODONE HYDROCHLORIDE [Concomitant]
  2. ESTRACE [Concomitant]
  3. CLONAZEPAM [Concomitant]
  4. VENLAFAXINE [Suspect]
     Indication: VERTIGO
     Dosage: 37.5MG ONCE A DAY PO
     Route: 048
     Dates: start: 20120514, end: 20120703

REACTIONS (2)
  - ALOPECIA [None]
  - ALOPECIA EFFLUVIUM [None]
